FAERS Safety Report 10825031 (Version 1)
Quarter: 2015Q1

REPORT INFORMATION
  Report Type: Report from Study
  Country: US (occurrence: US)
  Receive Date: 20150219
  Receipt Date: 20150219
  Transmission Date: 20150721
  Serious: No
  Sender: FDA-Public Use
  Company Number: US-ABBVIE-14K-163-1319288-00

PATIENT
  Age: 67 Year
  Sex: Male

DRUGS (4)
  1. HUMIRA [Suspect]
     Active Substance: ADALIMUMAB
     Indication: CROHN^S DISEASE
     Route: 065
     Dates: start: 20141205, end: 20141205
  2. HUMIRA [Suspect]
     Active Substance: ADALIMUMAB
     Route: 065
  3. CANASA [Concomitant]
     Active Substance: MESALAMINE
     Indication: FREQUENT BOWEL MOVEMENTS
  4. CANASA [Concomitant]
     Active Substance: MESALAMINE
     Indication: ANORECTAL DISCOMFORT

REACTIONS (2)
  - Frequent bowel movements [Not Recovered/Not Resolved]
  - Anorectal discomfort [Not Recovered/Not Resolved]

NARRATIVE: CASE EVENT DATE: 20141205
